FAERS Safety Report 8092004-5 (Version None)
Quarter: 2012Q1

REPORT INFORMATION
  Report Type: 
  Country: None (occurrence: None)
  Receive Date: 20120131
  Receipt Date: 20120130
  Transmission Date: 20120608
  Serious: Yes (Other)
  Sender: FDA-Public Use
  Company Number: US-JNJFOC-20120104548

PATIENT
  Sex: Female
  Weight: 62.6 kg

DRUGS (4)
  1. PREDNISONE TAB [Suspect]
     Indication: PRODUCT USED FOR UNKNOWN INDICATION
     Route: 065
  2. LEVAQUIN [Suspect]
     Indication: SINUS OPERATION
     Route: 048
     Dates: start: 20100817, end: 20100827
  3. NAPROXEN (ALEVE) [Concomitant]
     Route: 065
  4. INFLUENZA SHOT [Suspect]
     Indication: PRODUCT USED FOR UNKNOWN INDICATION
     Route: 065
     Dates: start: 20111001

REACTIONS (12)
  - CONDITION AGGRAVATED [None]
  - DYSPNOEA [None]
  - WEIGHT INCREASED [None]
  - SWOLLEN TONGUE [None]
  - PAIN [None]
  - MUSCLE RUPTURE [None]
  - DIABETES MELLITUS [None]
  - MUSCLE SPASMS [None]
  - INTENTIONAL DRUG MISUSE [None]
  - PAIN IN EXTREMITY [None]
  - TENSION HEADACHE [None]
  - MUSCLE TWITCHING [None]
